FAERS Safety Report 7517076-5 (Version None)
Quarter: 2011Q2

REPORT INFORMATION
  Report Type: 
  Country: None (occurrence: None)
  Receive Date: 20110601
  Receipt Date: 20110525
  Transmission Date: 20111010
  Serious: Yes (Other)
  Sender: FDA-Public Use
  Company Number: DE-TEVA-283540GER

PATIENT
  Sex: Female
  Weight: 64 kg

DRUGS (6)
  1. PREDNISOLONE [Suspect]
     Indication: RHEUMATOID ARTHRITIS
     Dosage: 30 MG/D / GW 0-14: 5MG/D, GW: 14-16: 10MG/D, GW 16-20: 15MG/D, GW 20-22: 20MG/D, GW 27-35 15MG/D
     Route: 048
  2. HUMIRA [Concomitant]
     Indication: RHEUMATOID ARTHRITIS
     Route: 058
  3. FOLIC ACID [Concomitant]
     Indication: PROPHYLAXIS OF NEURAL TUBE DEFECT
     Route: 048
     Dates: start: 20081115, end: 20090815
  4. ACETAMINOPHEN [Concomitant]
     Indication: RHEUMATOID ARTHRITIS
     Dosage: 3000 [MG/D ]/ 1500MG/D UP TO 3000MG/D
     Route: 048
  5. VOLTAREN [Suspect]
     Indication: RHEUMATOID ARTHRITIS
     Dosage: 280 MILLIGRAM;
     Route: 048
  6. IBUPROFEN [Suspect]
     Indication: RHEUMATOID ARTHRITIS
     Dosage: 600 MILLIGRAM;
     Route: 048

REACTIONS (3)
  - DUCTUS ARTERIOSUS STENOSIS FOETAL [None]
  - FOETAL GROWTH RESTRICTION [None]
  - OLIGOHYDRAMNIOS [None]
